FAERS Safety Report 20152035 (Version 1)
Quarter: 2021Q4

REPORT INFORMATION
  Report Type: Spontaneous
  Country: VN (occurrence: VN)
  Receive Date: 20211206
  Receipt Date: 20211206
  Transmission Date: 20220303
  Serious: Yes (Hospitalization, Other)
  Sender: FDA-Public Use
  Company Number: VN-ABBVIE-21K-179-4184074-00

PATIENT
  Age: 4 Month
  Sex: Female

DRUGS (5)
  1. VALPROATE SODIUM [Suspect]
     Active Substance: VALPROATE SODIUM
     Indication: Epilepsy
     Route: 065
     Dates: start: 202011, end: 2020
  2. HEXAXIM [Suspect]
     Active Substance: DIPHTHERIA AND TETANUS TOXOIDS AND ACELLULAR PERTUSSIS ADSORBED, INACTIVATED POLIOVIRUS AND HAEMOPHI
     Indication: Immunisation
     Route: 030
     Dates: start: 20201102
  3. HEXAXIM [Suspect]
     Active Substance: DIPHTHERIA AND TETANUS TOXOIDS AND ACELLULAR PERTUSSIS ADSORBED, INACTIVATED POLIOVIRUS AND HAEMOPHI
     Route: 030
     Dates: start: 20210127
  4. CALCIUM LACTATE [Suspect]
     Active Substance: CALCIUM LACTATE
     Indication: Product used for unknown indication
     Route: 065
     Dates: start: 202011, end: 2020
  5. MAGNESIUM OXIDE\PYRIDOXINE HYDROCHLORIDE [Suspect]
     Active Substance: MAGNESIUM OXIDE\PYRIDOXINE HYDROCHLORIDE
     Indication: Product used for unknown indication
     Route: 065
     Dates: start: 202011, end: 2020

REACTIONS (4)
  - Chills [Recovered/Resolved]
  - Cerebral haemorrhage [Unknown]
  - Partial seizures [Recovering/Resolving]
  - Seizure [Recovered/Resolved]

NARRATIVE: CASE EVENT DATE: 20201101
